FAERS Safety Report 9418018 (Version 1)
Quarter: 2013Q3

REPORT INFORMATION
  Report Type: Spontaneous
  Country: US (occurrence: US)
  Receive Date: 20130724
  Receipt Date: 20130724
  Transmission Date: 20140515
  Serious: No
  Sender: FDA-Public Use
  Company Number: US-BAUSCH-BL-2012-000350

PATIENT
  Age: 18 Year
  Sex: Male

DRUGS (1)
  1. OPCON-A [Suspect]
     Indication: DRY EYE
     Dosage: 1 DROP IN ONE EYE, ONE TIME
     Route: 047
     Dates: start: 20120802, end: 20120802

REACTIONS (2)
  - Wrong technique in drug usage process [Unknown]
  - Mydriasis [Not Recovered/Not Resolved]
